FAERS Safety Report 16640174 (Version 1)
Quarter: 2019Q3

REPORT INFORMATION
  Report Type: Spontaneous
  Country: US (occurrence: US)
  Receive Date: 20190728
  Receipt Date: 20190728
  Transmission Date: 20191004
  Serious: No
  Sender: FDA-Public Use
  Company Number: US-JNJFOC-20190734567

PATIENT
  Sex: Male
  Weight: 87.62 kg

DRUGS (1)
  1. MENS ROGAINE EXTRA STRENGTH [Suspect]
     Active Substance: MINOXIDIL
     Indication: ALOPECIA
     Dosage: HALF A CAPFUL TWICE A DAY, 2 DAYS
     Route: 061

REACTIONS (3)
  - Hair colour changes [Recovered/Resolved]
  - Skin disorder [Recovered/Resolved]
  - Application site erythema [Recovered/Resolved]
